FAERS Safety Report 5708450-8 (Version None)
Quarter: 2008Q2

REPORT INFORMATION
  Report Type: 
  Country: None (occurrence: None)
  Receive Date: 20080414
  Receipt Date: 20080328
  Transmission Date: 20081010
  Serious: Yes (Death)
  Sender: FDA-Public Use
  Company Number: GB-DEXPHARM-20080275

PATIENT
  Age: 19 Year
  Sex: Male

DRUGS (9)
  1. OMEPRAZOLE [Suspect]
     Dosage: ^1/1 A DAY^ {40 MG MILLIGRAM(S)}
  2. NIFEDIPINE [Suspect]
     Dosage: ^3/1 DAY^ {15 MG MILLIGRAM(S)}
  3. VALLERGAN (ALIMEMAZINE, TRIMEPRAZINE) [Suspect]
  4. ATROVENT [Concomitant]
  5. DOMPERIDONE [Concomitant]
  6. FLIXOTIDE (FLUTICASONE) [Concomitant]
  7. GAVISCON [Concomitant]
  8. SEREVENT (SALMETEROL, MELPHALAN) [Concomitant]
  9. VENTOLIN [Concomitant]

REACTIONS (4)
  - DRUG INEFFECTIVE [None]
  - HAEMOLYSIS [None]
  - IDIOPATHIC THROMBOCYTOPENIC PURPURA [None]
  - MALAISE [None]
